FAERS Safety Report 14367309 (Version 3)
Quarter: 2018Q1

REPORT INFORMATION
  Report Type: Spontaneous
  Country: FR (occurrence: FR)
  Receive Date: 20180109
  Receipt Date: 20180112
  Transmission Date: 20180509
  Serious: Yes (Hospitalization, Other)
  Sender: FDA-Public Use
  Company Number: FR-PFIZER INC-2018006895

PATIENT
  Age: 63 Year
  Sex: Male
  Weight: 74 kg

DRUGS (6)
  1. ZOPICLONE [Suspect]
     Active Substance: ZOPICLONE
     Indication: INSOMNIA
     Dosage: 1 DF, DAILY
     Route: 048
     Dates: start: 20171009, end: 20171109
  2. EXOMUC [Suspect]
     Active Substance: ACETYLCYSTEINE
     Indication: RHINITIS
     Dosage: 3 DF, DAILY
     Route: 048
     Dates: start: 20171009, end: 20171016
  3. BIRODOGYL [Suspect]
     Active Substance: METRONIDAZOLE\SPIRAMYCIN
     Indication: PHARYNGITIS
     Dosage: 3 DF, DAILY
     Route: 048
     Dates: start: 20171009, end: 20171016
  4. PIASCLEDINE [Suspect]
     Active Substance: AVOCADO OIL\SOYBEAN OIL
     Dosage: UNK
     Route: 048
     Dates: start: 20170908, end: 20171009
  5. ULTIBRO BREEZHALER [Suspect]
     Active Substance: GLYCOPYRRONIUM\INDACATEROL
     Indication: CHRONIC OBSTRUCTIVE PULMONARY DISEASE
     Dosage: 1 DF, DAILY
     Route: 055
     Dates: start: 20171009, end: 20171119
  6. TRIFLUCAN [Suspect]
     Active Substance: FLUCONAZOLE
     Indication: PHARYNGITIS
     Dosage: 100 MG, DAILY
     Route: 048
     Dates: start: 20171009, end: 20171023

REACTIONS (1)
  - Drug reaction with eosinophilia and systemic symptoms [Recovering/Resolving]

NARRATIVE: CASE EVENT DATE: 20171116
